FAERS Safety Report 8809348 (Version 1)
Quarter: 2012Q4

REPORT INFORMATION
  Report Type: 
  Country: EG (occurrence: EG)
  Receive Date: 20120926
  Receipt Date: 20120926
  Transmission Date: 20130627
  Serious: Yes (Other)
  Sender: FDA-Public Use
  Company Number: EG-JNJFOC-20120909090

PATIENT
  Sex: Female

DRUGS (4)
  1. CAELYX [Suspect]
     Indication: OVARIAN CANCER
     Dosage: diluted in 250ml of 5% dextrose on day 1 of the cycle
     Route: 042
  2. ELOXATIN [Suspect]
     Indication: OVARIAN CANCER
     Dosage: diluted in 500ml of 5% glucose on days 1 and 2 of the cycle
     Route: 042
  3. METHYLPREDNISOLONE [Concomitant]
     Indication: PROPHYLAXIS
     Route: 042
  4. 5-HT3 SEROTONIN ANTAGONIST [Concomitant]
     Indication: PROPHYLAXIS
     Dosage: in 100cm3 of saline
     Route: 065

REACTIONS (1)
  - Neuropathy peripheral [Unknown]
